FAERS Safety Report 22832173 (Version 2)
Quarter: 2023Q4

REPORT INFORMATION
  Report Type: Spontaneous
  Country: CZ (occurrence: CZ)
  Receive Date: 20230817
  Receipt Date: 20231021
  Transmission Date: 20240110
  Serious: Yes (Hospitalization, Other)
  Sender: FDA-Public Use
  Company Number: CZ-SANDOZ-SDZ2023CZ000127

PATIENT
  Age: 53 Year
  Sex: Female
  Weight: 47 kg

DRUGS (6)
  1. LENALIDOMIDE [Suspect]
     Active Substance: LENALIDOMIDE
     Indication: Follicular lymphoma
     Dosage: 20 MILLIGRAM DAILY; 20MILLIGRAM, QD; ORAL USE, START DATE: 26-JUL-2022:07.00, END DATE: 21-APR-2023:
     Route: 048
     Dates: start: 20220726, end: 20230421
  2. RITUXIMAB [Suspect]
     Active Substance: RITUXIMAB
     Indication: Follicular lymphoma
     Dosage: BLINDED, INFORMATION WITHHELD, END DATE: 17-APR-2023:07.00
     Dates: start: 202207, end: 20230417
  3. RITUXIMAB [Suspect]
     Active Substance: RITUXIMAB
     Indication: Follicular lymphoma
     Dosage: 375.000MG/M2
  4. RITUXIMAB [Suspect]
     Active Substance: RITUXIMAB
     Dosage: 611 MG
     Dates: start: 20221114
  5. FUROSEMIDE [Concomitant]
     Active Substance: FUROSEMIDE
     Indication: Product used for unknown indication
  6. SACUBITRIL\VALSARTAN [Concomitant]
     Active Substance: SACUBITRIL\VALSARTAN
     Indication: Product used for unknown indication

REACTIONS (3)
  - Cardiac failure [Not Recovered/Not Resolved]
  - Cardiotoxicity [Not Recovered/Not Resolved]
  - Pneumonia [Recovered/Resolved]

NARRATIVE: CASE EVENT DATE: 20230425
